FAERS Safety Report 12388481 (Version 1)
Quarter: 2016Q2

REPORT INFORMATION
  Report Type: Report from Study
  Country: JP (occurrence: JP)
  Receive Date: 20160520
  Receipt Date: 20160520
  Transmission Date: 20160815
  Serious: Yes (Other)
  Sender: FDA-Public Use
  Company Number: JP-SHIRE-JP201516577

PATIENT
  Age: 50 Year
  Sex: Female
  Weight: 66 kg

DRUGS (15)
  1. HYDREA [Concomitant]
     Active Substance: HYDROXYUREA
     Dosage: UNK, UNKNOWN
     Route: 048
     Dates: start: 20150219, end: 20150416
  2. MAINTATE [Concomitant]
     Active Substance: BISOPROLOL FUMARATE
     Indication: PRODUCT USED FOR UNKNOWN INDICATION
     Dosage: UNK, UNKNOWN
     Route: 048
     Dates: start: 20141105
  3. DICLOFENAC SODIUM. [Concomitant]
     Active Substance: DICLOFENAC SODIUM
     Indication: PRODUCT USED FOR UNKNOWN INDICATION
     Dosage: UNK, UNKNOWN
     Route: 065
     Dates: start: 20141024
  4. 422 (ANAGRELIDE) [Suspect]
     Active Substance: ANAGRELIDE
     Dosage: 0.5MG/DAY AND 1 MG/DAY, EVERY OTHER DAY
     Route: 048
     Dates: start: 20150807, end: 20150916
  5. BAYASPIRIN [Concomitant]
     Active Substance: ASPIRIN
     Indication: PROPHYLAXIS
     Dosage: UNK, UNKNOWN
     Route: 048
     Dates: start: 20140606, end: 20150304
  6. 422 (ANAGRELIDE) [Suspect]
     Active Substance: ANAGRELIDE
     Dosage: 0.5MG/DAY
     Route: 048
     Dates: start: 20150305, end: 20150402
  7. 422 (ANAGRELIDE) [Suspect]
     Active Substance: ANAGRELIDE
     Dosage: 1MG/DAY
     Route: 048
     Dates: start: 20150403, end: 20150806
  8. 422 (ANAGRELIDE) [Suspect]
     Active Substance: ANAGRELIDE
     Dosage: 1MG/DAY AND 1.5MG/DAY, EVERY OTHER DAY
     Route: 048
     Dates: start: 20151203, end: 20151228
  9. HYDREA [Concomitant]
     Active Substance: HYDROXYUREA
     Dosage: 857MG/DAY, UNKNOWN
     Route: 048
     Dates: start: 20141226, end: 20150218
  10. 422 (ANAGRELIDE) [Suspect]
     Active Substance: ANAGRELIDE
     Dosage: 1MG/DAY
     Route: 048
     Dates: start: 20150917, end: 20151104
  11. HYDREA [Concomitant]
     Active Substance: HYDROXYUREA
     Indication: ESSENTIAL THROMBOCYTHAEMIA
     Dosage: 500MG/DAY, UNKNOWN
     Route: 048
     Dates: start: 20141114, end: 20141123
  12. 422 (ANAGRELIDE) [Suspect]
     Active Substance: ANAGRELIDE
     Dosage: 1.5MG/DAY
     Route: 048
     Dates: start: 20151105, end: 20151202
  13. 422 (ANAGRELIDE) [Suspect]
     Active Substance: ANAGRELIDE
     Dosage: 1MG/DAY
     Route: 048
     Dates: start: 20151229
  14. 422 (ANAGRELIDE) [Suspect]
     Active Substance: ANAGRELIDE
     Indication: ESSENTIAL THROMBOCYTHAEMIA
     Dosage: 1MG/DAY
     Route: 048
     Dates: start: 20150219, end: 20150304
  15. HYDREA [Concomitant]
     Active Substance: HYDROXYUREA
     Dosage: 1000MG/DAY, UNKNOWN
     Route: 048
     Dates: start: 20141124, end: 20141225

REACTIONS (3)
  - Vertigo [Recovered/Resolved]
  - Palpitations [Recovering/Resolving]
  - Pneumonia [Recovered/Resolved]

NARRATIVE: CASE EVENT DATE: 20150220
